FAERS Safety Report 4948154-2 (Version None)
Quarter: 2006Q1

REPORT INFORMATION
  Report Type: 
  Country: None (occurrence: None)
  Receive Date: 20060320
  Receipt Date: 20060117
  Transmission Date: 20060701
  Serious: Yes (Hospitalization, Other)
  Sender: FDA-Public Use
  Company Number: ES-BRISTOL-MYERS SQUIBB COMPANY-13248950

PATIENT
  Age: 63 Year
  Sex: Female

DRUGS (3)
  1. LIPLAT [Suspect]
     Indication: DYSLIPIDAEMIA
     Route: 048
  2. SUCRALFATE [Concomitant]
     Indication: GASTROOESOPHAGEAL REFLUX DISEASE
  3. FAMOTIDINE [Concomitant]
     Indication: GASTROOESOPHAGEAL REFLUX DISEASE

REACTIONS (6)
  - CHEST PAIN [None]
  - COUGH [None]
  - EOSINOPHILIC PNEUMONIA [None]
  - HYPERSENSITIVITY [None]
  - MALAISE [None]
  - MUSCULOSKELETAL PAIN [None]
